FAERS Safety Report 8923665 (Version 1)
Quarter: 2012Q4

REPORT INFORMATION
  Report Type: Spontaneous
  Country: US (occurrence: None)
  Receive Date: 20121109
  Receipt Date: 20121109
  Transmission Date: 20130627
  Serious: Yes (Other)
  Sender: FDA-Public Use
  Company Number: 2011S1000807

PATIENT
  Age: 57 Year
  Sex: Female
  Weight: 56.3 kg

DRUGS (2)
  1. CUBICIN [Suspect]
     Indication: CELLULITIS
     Dates: start: 20110928
  2. VANCOMYCIN [Concomitant]

REACTIONS (1)
  - Blood creatinine increased [None]
